FAERS Safety Report 7880425-2 (Version None)
Quarter: 2011Q4

REPORT INFORMATION
  Report Type: 
  Country: None (occurrence: None)
  Receive Date: 20111101
  Receipt Date: 20111025
  Transmission Date: 20120403
  Serious: Yes (Other)
  Sender: FDA-Public Use
  Company Number: PHHY2011JP95545

PATIENT
  Age: 4 Month

DRUGS (2)
  1. ZADITEN [Suspect]
     Dosage: UNK UKN, UNK
  2. MUCODYNE [Concomitant]
     Dosage: UNK UKN, UNK

REACTIONS (1)
  - OLIGURIA [None]
